FAERS Safety Report 7805916-1 (Version None)
Quarter: 2011Q4

REPORT INFORMATION
  Report Type: 
  Country: None (occurrence: None)
  Receive Date: 20111011
  Receipt Date: 20111003
  Transmission Date: 20120403
  Serious: No
  Sender: FDA-Public Use
  Company Number: US-BIOGENIDEC-2011BI037799

PATIENT
  Age: 48 Year
  Sex: Male

DRUGS (3)
  1. BACLOFEN [Concomitant]
     Dates: start: 20100301
  2. KLANZAPEN (INTERPRETED TO MEAN CLONAZEPAM) [Concomitant]
     Dates: start: 20110601
  3. AVONEX [Suspect]
     Indication: MULTIPLE SCLEROSIS
     Route: 030
     Dates: start: 20110225

REACTIONS (5)
  - FATIGUE [None]
  - DYSSTASIA [None]
  - INJECTION SITE HAEMATOMA [None]
  - HAEMORRHAGE [None]
  - VENOUS INJURY [None]
